FAERS Safety Report 21498913 (Version 2)
Quarter: 2022Q4

REPORT INFORMATION
  Report Type: Report from Study
  Country: US (occurrence: US)
  Receive Date: 20221024
  Receipt Date: 20221028
  Transmission Date: 20230112
  Serious: No
  Sender: FDA-Public Use
  Company Number: US-AGIOS-2210US03164

PATIENT
  Sex: Male

DRUGS (1)
  1. MITAPIVAT [Suspect]
     Active Substance: MITAPIVAT
     Indication: Pyruvate kinase deficiency anaemia
     Dosage: 20 MILLIGRAM
     Route: 048
     Dates: start: 20220401

REACTIONS (3)
  - Product dose omission in error [Unknown]
  - Depression [Unknown]
  - Hypersensitivity [Unknown]
